FAERS Safety Report 21137100 (Version 2)
Quarter: 2022Q3

REPORT INFORMATION
  Report Type: Spontaneous
  Country: US (occurrence: US)
  Receive Date: 20220727
  Receipt Date: 20220809
  Transmission Date: 20221027
  Serious: No
  Sender: FDA-Public Use
  Company Number: US-BRISTOL-MYERS SQUIBB COMPANY-2022-080808

PATIENT
  Age: 76 Year
  Sex: Female

DRUGS (1)
  1. POMALYST [Suspect]
     Active Substance: POMALIDOMIDE
     Indication: Product used for unknown indication
     Dosage: FREQ - TAKE 1 CAPSULE (2MG) BY MOUTH ONCE DAILY FOR 7 DAYS FOLLOWED BY 7 DAYS OFF.
     Route: 048
     Dates: start: 20200505

REACTIONS (2)
  - Product dose omission issue [Unknown]
  - Product prescribing issue [Unknown]
